FAERS Safety Report 19647464 (Version 4)
Quarter: 2021Q4

REPORT INFORMATION
  Report Type: Spontaneous
  Country: AE (occurrence: AE)
  Receive Date: 20210802
  Receipt Date: 20211208
  Transmission Date: 20220303
  Serious: Yes (Hospitalization, Other)
  Sender: FDA-Public Use
  Company Number: NVSC2021AE164649

PATIENT
  Age: 39 Year
  Sex: Female

DRUGS (3)
  1. MEKINIST [Suspect]
     Active Substance: TRAMETINIB DIMETHYL SULFOXIDE
     Indication: Malignant melanoma
     Dosage: UNK
     Route: 065
     Dates: start: 20210314
  2. TAFINLAR [Suspect]
     Active Substance: DABRAFENIB MESYLATE
     Indication: Malignant melanoma
     Dosage: UNK
     Route: 065
     Dates: start: 20210314
  3. TAFINLAR [Suspect]
     Active Substance: DABRAFENIB MESYLATE
     Dosage: UNK
     Route: 065

REACTIONS (58)
  - Ascites [Unknown]
  - Sepsis [Unknown]
  - Metastases to central nervous system [Unknown]
  - Pyrexia [Unknown]
  - Malignant melanoma [Recovered/Resolved]
  - Nephrolithiasis [Unknown]
  - Faecaloma [Unknown]
  - Pulmonary infarction [Unknown]
  - Metastasis [Unknown]
  - Metastases to peritoneum [Unknown]
  - Malignant neoplasm progression [Unknown]
  - General physical health deterioration [Unknown]
  - Blood alkaline phosphatase increased [Unknown]
  - Alanine aminotransferase increased [Unknown]
  - Haematocrit decreased [Unknown]
  - Aspartate aminotransferase increased [Unknown]
  - Blood bilirubin increased [Unknown]
  - Blood calcium decreased [Unknown]
  - Lymphocyte count decreased [Unknown]
  - Mean cell haemoglobin decreased [Unknown]
  - Mean cell volume decreased [Unknown]
  - Protein total decreased [Unknown]
  - Red cell distribution width increased [Unknown]
  - White blood cell count increased [Unknown]
  - Haemoglobin decreased [Unknown]
  - Blood albumin decreased [Unknown]
  - Blood triglycerides increased [Unknown]
  - Eosinophil count increased [Unknown]
  - Carbon dioxide decreased [Unknown]
  - Neutrophil count increased [Unknown]
  - Blood creatinine decreased [Unknown]
  - Blood sodium increased [Unknown]
  - Red blood cell count increased [Unknown]
  - Oedema peripheral [Unknown]
  - Cyst [Unknown]
  - Peritoneal cyst [Unknown]
  - Mesenteric cyst [Unknown]
  - Glomerular filtration rate abnormal [Unknown]
  - High density lipoprotein decreased [Unknown]
  - High density lipoprotein decreased [Unknown]
  - Blood chloride decreased [Unknown]
  - Thyroxine free decreased [Unknown]
  - Blood potassium decreased [Unknown]
  - Ureteric dilatation [Unknown]
  - Spleen disorder [Unknown]
  - Ureteral disorder [Unknown]
  - Nodule [Unknown]
  - Lipase increased [Unknown]
  - C-reactive protein increased [Unknown]
  - Lung opacity [Unknown]
  - Pulmonary mass [Unknown]
  - Mean cell haemoglobin concentration decreased [Unknown]
  - Candida infection [Unknown]
  - Suspected counterfeit product [Unknown]
  - Counterfeit product administered [Unknown]
  - Product administration error [Unknown]
  - Somnolence [Unknown]
  - Pain [Unknown]

NARRATIVE: CASE EVENT DATE: 20210314
